FAERS Safety Report 15532789 (Version 1)
Quarter: 2018Q4

REPORT INFORMATION
  Report Type: Report from Study
  Country: US (occurrence: US)
  Receive Date: 20181019
  Receipt Date: 20181019
  Transmission Date: 20190205
  Serious: Yes (Other)
  Sender: FDA-Public Use
  Company Number: US-ASTRAZENECA-2017SE68320

PATIENT
  Sex: Female

DRUGS (22)
  1. CLONIDINE. [Concomitant]
     Active Substance: CLONIDINE
  2. MAGNESIUM [Concomitant]
     Active Substance: MAGNESIUM
  3. NORVASC [Concomitant]
     Active Substance: AMLODIPINE BESYLATE
  4. LACTOBACILLUS CASEI [Concomitant]
     Active Substance: LACTOBACILLUS CASEI
  5. CATAPRES-TTS [Concomitant]
     Active Substance: CLONIDINE
  6. BYDUREON [Suspect]
     Active Substance: EXENATIDE
     Dosage: UNKNOWN
     Route: 065
  7. FLUZONE [Concomitant]
     Active Substance: INFLUENZA A VIRUS A/CALIFORNIA/7/2009 X-179A (H1N1) ANTIGEN (FORMALDEHYDE INACTIVATED)\INFLUENZA A VIRUS A/VICTORIA/210/2009 X-187 (H3N2) ANTIGEN (FORMALDEHYDE INACTIVATED)\INFLUENZA B VIRUS B/BRISBANE/60/2008 ANTIGEN (FORMALDEHYDE INACTIVATED)
     Route: 030
  8. LACTIC ACID. [Concomitant]
     Active Substance: LACTIC ACID
  9. LIPASE [Concomitant]
     Active Substance: LIPASE
  10. ALPRAZOLAM. [Concomitant]
     Active Substance: ALPRAZOLAM
  11. PHENERGAN [Concomitant]
     Active Substance: PROMETHAZINE HYDROCHLORIDE
  12. DILAUDID [Concomitant]
     Active Substance: HYDROMORPHONE HYDROCHLORIDE
  13. PEPCID [Concomitant]
     Active Substance: FAMOTIDINE
  14. LISINOPRIL HCTZ [Suspect]
     Active Substance: HYDROCHLOROTHIAZIDE\LISINOPRIL
     Dosage: 20/12.5 MG 1 DF DAILY
     Route: 048
  15. SIMVASTATIN. [Concomitant]
     Active Substance: SIMVASTATIN
  16. AMYLASE [Concomitant]
     Active Substance: AMYLASE
  17. ONDANSETRON [Concomitant]
     Active Substance: ONDANSETRON
  18. ZOSYN [Concomitant]
     Active Substance: PIPERACILLIN SODIUM\TAZOBACTAM SODIUM
  19. FLAGYL [Concomitant]
     Active Substance: METRONIDAZOLE\METRONIDAZOLE HYDROCHLORIDE
  20. SODIUM CHLORIDE. [Concomitant]
     Active Substance: SODIUM CHLORIDE
  21. LISINOPRIL. [Suspect]
     Active Substance: LISINOPRIL
     Route: 048
  22. GLIMEPIRIDE. [Concomitant]
     Active Substance: GLIMEPIRIDE
     Route: 048

REACTIONS (16)
  - Anaemia [Unknown]
  - Acidosis [Unknown]
  - Influenza [Unknown]
  - Polymenorrhoea [Unknown]
  - Colitis [Unknown]
  - Glycosylated haemoglobin increased [Unknown]
  - Essential hypertension [Unknown]
  - Hyperlipidaemia [Unknown]
  - Menorrhagia [Unknown]
  - Retinal haemorrhage [Unknown]
  - Intentional product misuse [Unknown]
  - Acute kidney injury [Unknown]
  - Blood glucose increased [Unknown]
  - Gout [Unknown]
  - Hypertension [Unknown]
  - Gastrointestinal inflammation [Unknown]
